FAERS Safety Report 26067460 (Version 1)
Quarter: 2025Q4

REPORT INFORMATION
  Report Type: Spontaneous
  Country: EU (occurrence: EU)
  Receive Date: 20251120
  Receipt Date: 20251120
  Transmission Date: 20260117
  Serious: Yes (Other)
  Sender: HIKMA
  Company Number: EU-MLMSERVICE-20251105-PI702597-00090-1

PATIENT
  Age: 32 Year
  Sex: Female

DRUGS (1)
  1. CEFUROXIME [Suspect]
     Active Substance: CEFUROXIME
     Indication: Vulval ulceration
     Dosage: UNKNOWN
     Route: 065

REACTIONS (5)
  - Paraesthesia [Recovered/Resolved]
  - Dyspnoea [Recovered/Resolved]
  - Oropharyngeal discomfort [Recovered/Resolved]
  - Tongue oedema [Recovered/Resolved]
  - Drug hypersensitivity [Recovered/Resolved]
